FAERS Safety Report 11067972 (Version 1)
Quarter: 2015Q2

REPORT INFORMATION
  Report Type: Spontaneous
  Country: US (occurrence: None)
  Receive Date: 20150424
  Receipt Date: 20150424
  Transmission Date: 20150821
  Serious: Yes (Life-Threatening, Hospitalization, Other)
  Sender: FDA-Public Use
  Company Number: None

PATIENT
  Age: 59 Year
  Sex: Female
  Weight: 81.65 kg

DRUGS (14)
  1. LEVAQUIN [Suspect]
     Active Substance: LEVOFLOXACIN
     Indication: RESPIRATORY DISORDER
     Dosage: 1 ONCE DAILY TAKEN BY MOUTH
     Route: 048
     Dates: start: 20150408, end: 20150410
  2. LEVAQUIN [Suspect]
     Active Substance: LEVOFLOXACIN
     Indication: SINUS DISORDER
     Dosage: 1 ONCE DAILY TAKEN BY MOUTH
     Route: 048
     Dates: start: 20150408, end: 20150410
  3. OMEGA3 [Concomitant]
  4. VAGIFEM [Concomitant]
     Active Substance: ESTRADIOL
  5. TYLENOL [Concomitant]
     Active Substance: ACETAMINOPHEN
  6. CURCUMIN [Concomitant]
     Active Substance: CURCUMIN
  7. NIACIN. [Concomitant]
     Active Substance: NIACIN
  8. D3 [Concomitant]
     Active Substance: 25-HYDROXYCHOLECALCIFEROL, 5-TRANS-
  9. UBIQUINOL [Concomitant]
  10. K2 [Concomitant]
     Active Substance: JWH-018
  11. VITAMIN B12 [Concomitant]
     Active Substance: CYANOCOBALAMIN
  12. SYMBICORT [Concomitant]
     Active Substance: BUDESONIDE\FORMOTEROL FUMARATE DIHYDRATE
  13. XARELTO [Concomitant]
     Active Substance: RIVAROXABAN
  14. MAGNESIUM [Concomitant]
     Active Substance: MAGNESIUM

REACTIONS (1)
  - Deep vein thrombosis [None]

NARRATIVE: CASE EVENT DATE: 20150416
